FAERS Safety Report 16911301 (Version 2)
Quarter: 2019Q4

REPORT INFORMATION
  Report Type: Spontaneous
  Country: BR (occurrence: BR)
  Receive Date: 20191013
  Receipt Date: 20191105
  Transmission Date: 20200122
  Serious: Yes (Death, Other)
  Sender: FDA-Public Use
  Company Number: BR-B.I. PHARMACEUTICALS,INC./RIDGEFIELD-2019-BI-107334

PATIENT
  Age: 71 Year
  Sex: Male
  Weight: 48.1 kg

DRUGS (3)
  1. STRIVERDI RESPIMAT [Concomitant]
     Active Substance: OLODATEROL HYDROCHLORIDE
     Indication: DYSPNOEA
     Route: 055
     Dates: start: 201801, end: 201909
  2. OFEV [Suspect]
     Active Substance: NINTEDANIB
     Route: 048
     Dates: end: 20190930
  3. OFEV [Suspect]
     Active Substance: NINTEDANIB
     Indication: IDIOPATHIC PULMONARY FIBROSIS
     Route: 048
     Dates: start: 20180401

REACTIONS (6)
  - Chronic respiratory failure [Fatal]
  - Asthenia [Not Recovered/Not Resolved]
  - Idiopathic pulmonary fibrosis [Fatal]
  - Shock [Fatal]
  - Malaise [Not Recovered/Not Resolved]
  - Near death experience [Unknown]

NARRATIVE: CASE EVENT DATE: 201805
